FAERS Safety Report 7050974-8 (Version None)
Quarter: 2010Q4

REPORT INFORMATION
  Report Type: 
  Country: None (occurrence: None)
  Receive Date: 20101012
  Receipt Date: 20101001
  Transmission Date: 20110411
  Serious: Yes (Other)
  Sender: FDA-Public Use
  Company Number: 016960

PATIENT
  Sex: Female
  Weight: 68 kg

DRUGS (8)
  1. LEVETIRACETAM [Suspect]
     Indication: CONVULSION
     Dosage: (4000 MG, 4000MG TOTAL 1500MG IN AM AND PM AND 1000MG AT NOON ORAL) ; (DOSE REDUCTION
     Route: 048
     Dates: start: 20100730
  2. KEPPRA [Suspect]
  3. LACOSAMIDE [Concomitant]
  4. CLARITIN /00917501/ [Concomitant]
  5. DECADRON [Concomitant]
  6. PEPCID [Concomitant]
  7. BENADRYL [Concomitant]
  8. DILANTIN [Concomitant]

REACTIONS (3)
  - DEPRESSION [None]
  - GLIOBLASTOMA [None]
  - MALIGNANT NEOPLASM PROGRESSION [None]
